FAERS Safety Report 8579206-6 (Version None)
Quarter: 2012Q3

REPORT INFORMATION
  Report Type: 
  Country: None (occurrence: None)
  Receive Date: 20120730
  Receipt Date: 20120730
  Transmission Date: 20120928
  Serious: Yes (Other)
  Sender: FDA-Public Use
  Company Number: None

PATIENT
  Age: 57 Year
  Sex: Female
  Weight: 86.1834 kg

DRUGS (1)
  1. HYDROCODONE BITARTRATE + ACETAMINOPHEN [Suspect]
     Indication: PAIN
     Dosage: 2 TABLETS EVERY 4 HOURS PO
     Route: 048
     Dates: start: 20120720, end: 20120727

REACTIONS (4)
  - PRURITUS [None]
  - PRODUCT SUBSTITUTION ISSUE [None]
  - DYSPNOEA [None]
  - PRODUCT QUALITY ISSUE [None]
